FAERS Safety Report 14337188 (Version 1)
Quarter: 2017Q4

REPORT INFORMATION
  Report Type: Spontaneous
  Country: US (occurrence: US)
  Receive Date: 20171228
  Receipt Date: 20171228
  Transmission Date: 20180321
  Serious: Yes (Death)
  Sender: FDA-Public Use
  Company Number: None

PATIENT
  Age: 77 Year
  Sex: Male
  Weight: 115.2 kg

DRUGS (8)
  1. ACYCLOVIR. [Concomitant]
     Active Substance: ACYCLOVIR
  2. NEXAVAR [Concomitant]
     Active Substance: SORAFENIB
  3. PREDNISONE. [Concomitant]
     Active Substance: PREDNISONE
  4. RYDAPT [Suspect]
     Active Substance: MIDOSTAURIN
     Indication: PROSTATE CANCER
     Route: 048
     Dates: start: 20170906, end: 20171211
  5. ZYTIGA [Suspect]
     Active Substance: ABIRATERONE ACETATE
     Indication: PROSTATE CANCER
     Route: 048
     Dates: start: 20151124, end: 20171211
  6. ZYTIGA [Suspect]
     Active Substance: ABIRATERONE ACETATE
     Indication: ACUTE MYELOID LEUKAEMIA
     Route: 048
     Dates: start: 20151124, end: 20171211
  7. RYDAPT [Suspect]
     Active Substance: MIDOSTAURIN
     Indication: ACUTE MYELOID LEUKAEMIA
     Route: 048
     Dates: start: 20170906, end: 20171211
  8. PROCHLORPERAZINE. [Concomitant]
     Active Substance: PROCHLORPERAZINE

REACTIONS (1)
  - Death [None]

NARRATIVE: CASE EVENT DATE: 20171211
